FAERS Safety Report 10157442 (Version 3)
Quarter: 2014Q3

REPORT INFORMATION
  Report Type: Spontaneous
  Country: US (occurrence: US)
  Receive Date: 20140507
  Receipt Date: 20140821
  Transmission Date: 20150326
  Serious: Yes (Hospitalization)
  Sender: FDA-Public Use
  Company Number: US-BAYER-2014-066447

PATIENT
  Age: 51 Year
  Sex: Female
  Weight: 68.27 kg

DRUGS (7)
  1. FERROUS SULFATE [Concomitant]
     Active Substance: FERROUS SULFATE\FERROUS SULFATE, DRIED
     Dosage: UNK UNK, BID
  2. MULTI-VIT [Concomitant]
     Active Substance: VITAMINS
  3. FERROUS SULFATE [Concomitant]
     Active Substance: FERROUS SULFATE\FERROUS SULFATE, DRIED
  4. YASMIN [Suspect]
     Active Substance: DROSPIRENONE\ETHINYL ESTRADIOL
     Dosage: UNK
     Dates: start: 200302, end: 200306
  5. IMODIUM [Concomitant]
     Active Substance: LOPERAMIDE HYDROCHLORIDE
  6. NEXIUM [Concomitant]
     Active Substance: ESOMEPRAZOLE MAGNESIUM
  7. MOTRIN [Concomitant]
     Active Substance: IBUPROFEN

REACTIONS (5)
  - Peripheral swelling [None]
  - Deep vein thrombosis [None]
  - Genital haemorrhage [None]
  - Pain in extremity [None]
  - Injury [None]

NARRATIVE: CASE EVENT DATE: 200304
